FAERS Safety Report 9671398 (Version 11)
Quarter: 2014Q4

REPORT INFORMATION
  Report Type: Report from Study
  Country: IT (occurrence: IT)
  Receive Date: 20131106
  Receipt Date: 20141118
  Transmission Date: 20150529
  Serious: Yes (Hospitalization)
  Sender: FDA-Public Use
  Company Number: IT-BAYER-2013-096310

PATIENT
  Age: 73 Year
  Sex: Male
  Weight: 69 kg

DRUGS (12)
  1. DELTACORTENE [Concomitant]
     Active Substance: PREDNISONE
     Indication: PAIN
     Dosage: 12.5 MG DAILY
     Route: 048
     Dates: start: 20130517, end: 20140308
  2. RADIUM-223 DICHLORIDE [Suspect]
     Active Substance: RADIUM RA-223 DICHLORIDE
     Indication: PROSTATE CANCER
     Dosage: 50 KBQ/KG
     Route: 042
     Dates: start: 20130318, end: 20130318
  3. RADIUM-223 DICHLORIDE [Suspect]
     Active Substance: RADIUM RA-223 DICHLORIDE
     Indication: PROSTATE CANCER
     Dosage: 50 KBQ/KG
     Route: 042
     Dates: start: 20130517, end: 20130517
  4. RADIUM-223 DICHLORIDE [Suspect]
     Active Substance: RADIUM RA-223 DICHLORIDE
     Indication: PROSTATE CANCER
     Dosage: 50 KBQ/KG
     Route: 042
     Dates: start: 20130417, end: 20130417
  5. RADIUM-223 DICHLORIDE [Suspect]
     Active Substance: RADIUM RA-223 DICHLORIDE
     Indication: PROSTATE CANCER
     Dosage: 50 KBQ/KG
     Route: 042
     Dates: start: 20130613, end: 20130613
  6. RADIUM-223 DICHLORIDE [Suspect]
     Active Substance: RADIUM RA-223 DICHLORIDE
     Indication: PROSTATE CANCER
     Dosage: 50 KBQ/KG
     Route: 042
     Dates: start: 20130712, end: 20130712
  7. VOLTAREN [DICLOFENAC] [Concomitant]
     Active Substance: DICLOFENAC SODIUM
     Indication: PAIN
     Dosage: 100 MG DAILY
     Route: 048
     Dates: start: 20130417, end: 20140308
  8. CARDURA [Concomitant]
     Active Substance: DOXAZOSIN MESYLATE
     Indication: HYPERTENSION
     Dosage: 2 MG DAILY
     Dates: start: 2012, end: 20140308
  9. DECAPEPTYL [TRIPTORELIN ACETATE] [Concomitant]
     Indication: PROSTATE CANCER
  10. PREGABALIN. [Concomitant]
     Active Substance: PREGABALIN
     Indication: NEUROPATHY PERIPHERAL
     Dosage: UNK
     Route: 048
     Dates: start: 201111, end: 20140308
  11. REAPTAN [Concomitant]
     Active Substance: AMLODIPINE BESYLATE
     Indication: HYPERTENSION
     Dosage: 10 MG DAILY
     Route: 048
     Dates: start: 2012, end: 20140308
  12. IMODIUM [LOPERAMIDE HYDROCHLORIDE] [Concomitant]
     Indication: DIARRHOEA
     Dosage: 2 MG DAILY
     Route: 048
     Dates: start: 20130320, end: 20140308

REACTIONS (3)
  - Fatigue [Recovered/Resolved]
  - Gastric haemorrhage [Recovered/Resolved with Sequelae]
  - Fatigue [Recovered/Resolved]

NARRATIVE: CASE EVENT DATE: 20130418
